FAERS Safety Report 9454581 (Version 1)
Quarter: 2013Q3

REPORT INFORMATION
  Report Type: Report from Study
  Country: JP (occurrence: JP)
  Receive Date: 20130812
  Receipt Date: 20130812
  Transmission Date: 20140515
  Serious: Yes (Life-Threatening, Other)
  Sender: FDA-Public Use
  Company Number: JP-GENZYME-THYM-1003968

PATIENT
  Age: 63 Year
  Sex: Female
  Weight: 33 kg

DRUGS (15)
  1. THYMOGLOBULIN [Suspect]
     Indication: ACUTE GRAFT VERSUS HOST DISEASE
     Dosage: 25 MG, QD
     Route: 065
     Dates: start: 20111125, end: 20111125
  2. THYMOGLOBULIN [Suspect]
     Dosage: 25 MG, QD
     Route: 065
     Dates: start: 20111127, end: 20111127
  3. THYMOGLOBULIN [Suspect]
     Dosage: 25 MG, QD
     Route: 065
     Dates: start: 20111216, end: 20111216
  4. THYMOGLOBULIN [Suspect]
     Dosage: 25 MG, QD
     Route: 065
     Dates: start: 20111228, end: 20111228
  5. THYMOGLOBULIN [Suspect]
     Dosage: 25 MG, QD
     Route: 065
     Dates: start: 20111230, end: 20111230
  6. FOSCAVIR [Concomitant]
     Indication: INFECTION PROPHYLAXIS
     Dosage: UNK
     Route: 065
     Dates: end: 20120126
  7. ZOVIRAX [Concomitant]
     Indication: INFECTION PROPHYLAXIS
     Dosage: UNK
     Route: 065
  8. VFEND [Concomitant]
     Indication: INFECTION PROPHYLAXIS
     Dosage: UNK
     Route: 065
  9. CRAVIT [Concomitant]
     Indication: INFECTION PROPHYLAXIS
     Dosage: UNK
     Route: 065
  10. METHYLPREDNISOLONE [Concomitant]
     Indication: PROPHYLAXIS AGAINST GRAFT VERSUS HOST DISEASE
     Dosage: UNK
     Route: 065
  11. TACROLIMUS [Concomitant]
     Indication: PROPHYLAXIS AGAINST GRAFT VERSUS HOST DISEASE
     Dosage: UNK
     Route: 065
  12. BECLOMETASONE DIPROPIONATE [Concomitant]
     Indication: PROPHYLAXIS AGAINST GRAFT VERSUS HOST DISEASE
     Dosage: UNK
     Route: 065
  13. GRAN [Concomitant]
     Indication: HYPERTENSION
     Dosage: UNK
     Route: 065
     Dates: end: 20111128
  14. GRAN [Concomitant]
     Indication: ACUTE MYELOID LEUKAEMIA
  15. ZOSYN [Concomitant]
     Indication: INFECTION PROPHYLAXIS
     Dosage: UNK
     Route: 065
     Dates: start: 20111126, end: 20111202

REACTIONS (2)
  - Acute graft versus host disease in intestine [Unknown]
  - Acute myeloid leukaemia recurrent [Not Recovered/Not Resolved]
